FAERS Safety Report 7571495-X (Version None)
Quarter: 2011Q2

REPORT INFORMATION
  Report Type: 
  Country: None (occurrence: None)
  Receive Date: 20110624
  Receipt Date: 20110613
  Transmission Date: 20111010
  Serious: Yes (Other)
  Sender: FDA-Public Use
  Company Number: MX-JNJFOC-20110606853

PATIENT
  Sex: Female

DRUGS (1)
  1. REMICADE [Suspect]
     Indication: PRODUCT USED FOR UNKNOWN INDICATION
     Route: 042
     Dates: start: 20081201

REACTIONS (5)
  - HYPERTENSION [None]
  - TACHYCARDIA [None]
  - VOMITING [None]
  - NAUSEA [None]
  - RESPIRATORY FAILURE [None]
